FAERS Safety Report 15689865 (Version 1)
Quarter: 2018Q4

REPORT INFORMATION
  Report Type: Spontaneous
  Country: US (occurrence: US)
  Receive Date: 20181205
  Receipt Date: 20181205
  Transmission Date: 20190205
  Serious: Yes (Hospitalization)
  Sender: FDA-Public Use
  Company Number: None

PATIENT
  Age: 44 Year
  Sex: Female
  Weight: 80.55 kg

DRUGS (3)
  1. SYNTHROID [Concomitant]
     Active Substance: LEVOTHYROXINE SODIUM
  2. IMDUR [Concomitant]
     Active Substance: ISOSORBIDE MONONITRATE
  3. LYRICA [Suspect]
     Active Substance: PREGABALIN
     Indication: NERVE INJURY
     Dosage: ?          QUANTITY:360 CAPSULE(S);?
     Route: 048
     Dates: start: 20181105, end: 20181204

REACTIONS (6)
  - Swelling face [None]
  - Peripheral swelling [None]
  - Lip swelling [None]
  - Pruritus [None]
  - Mouth swelling [None]
  - Angioedema [None]

NARRATIVE: CASE EVENT DATE: 20181204
